FAERS Safety Report 9778685 (Version 2)
Quarter: 2014Q3

REPORT INFORMATION
  Report Type: Spontaneous
  Country: US (occurrence: None)
  Receive Date: 20131219
  Receipt Date: 20140915
  Transmission Date: 20150326
  Serious: Yes (Hospitalization, Other)
  Sender: FDA-Public Use
  Company Number: 2013-US-004276

PATIENT
  Age: 67 Year
  Sex: Female

DRUGS (2)
  1. XYREM [Suspect]
     Active Substance: SODIUM OXYBATE
     Indication: WAXY FLEXIBILITY
     Dosage: 2.25 G, BID, ORAL
     Route: 048
     Dates: start: 200307, end: 2003
  2. XYREM [Suspect]
     Active Substance: SODIUM OXYBATE
     Indication: NARCOLEPSY
     Dosage: 2.25 G, BID, ORAL
     Route: 048
     Dates: start: 200307, end: 2003

REACTIONS (6)
  - Device malfunction [None]
  - Vulvovaginal injury [None]
  - Gastrointestinal injury [None]
  - Thermal burn [None]
  - Procedural complication [None]
  - Visual impairment [None]
